FAERS Safety Report 21082974 (Version 1)
Quarter: 2022Q3

REPORT INFORMATION
  Report Type: Spontaneous
  Country: US (occurrence: None)
  Receive Date: 20220714
  Receipt Date: 20220714
  Transmission Date: 20221026
  Serious: Yes (Other)
  Sender: FDA-Public Use
  Company Number: None

PATIENT
  Age: 57 Year
  Sex: Female
  Weight: 57.6 kg

DRUGS (13)
  1. HERBALS [Suspect]
     Active Substance: HERBALS
     Dates: start: 20220618, end: 20220625
  2. PAXLOVID [Suspect]
     Active Substance: NIRMATRELVIR\RITONAVIR
     Indication: COVID-19
     Dosage: FREQUENCY : EVERY 12 HOURS;?
     Route: 048
     Dates: start: 20220618, end: 20220622
  3. OLMESARTAN [Concomitant]
     Active Substance: OLMESARTAN
  4. SINGULAIR [Concomitant]
     Active Substance: MONTELUKAST SODIUM
  5. ELAVIL [Concomitant]
     Active Substance: AMITRIPTYLINE HYDROCHLORIDE
  6. restasis eye drops [Concomitant]
  7. BENADRYL [Concomitant]
     Active Substance: DIPHENHYDRAMINE HYDROCHLORIDE
  8. ZYRTEC [Concomitant]
     Active Substance: CETIRIZINE HYDROCHLORIDE
  9. IBUPROFEN [Concomitant]
     Active Substance: IBUPROFEN
  10. Ritual women over 50 vitamins [Concomitant]
  11. Prose healthy scalp vitamins [Concomitant]
  12. DIETARY SUPPLEMENT [Concomitant]
     Active Substance: DIETARY SUPPLEMENT
  13. kava kava herbal supplement [Concomitant]

REACTIONS (5)
  - Chromaturia [None]
  - Abdominal tenderness [None]
  - Fatigue [None]
  - Jaundice [None]
  - Hepatic enzyme increased [None]

NARRATIVE: CASE EVENT DATE: 20220629
